FAERS Safety Report 14098673 (Version 1)
Quarter: 2017Q4

REPORT INFORMATION
  Report Type: Report from Study
  Country: None (occurrence: US)
  Receive Date: 20171017
  Receipt Date: 20171017
  Transmission Date: 20180321
  Serious: Yes (Other)
  Sender: FDA-Public Use
  Company Number: US-ABBVIE-17K-163-2087686-00

PATIENT
  Sex: Female

DRUGS (4)
  1. HUMIRA [Suspect]
     Active Substance: ADALIMUMAB
     Route: 058
  2. HUMIRA [Suspect]
     Active Substance: ADALIMUMAB
     Indication: ANKYLOSING SPONDYLITIS
     Route: 058
  3. METHOTREXATE. [Concomitant]
     Active Substance: METHOTREXATE
     Indication: PRODUCT USED FOR UNKNOWN INDICATION
     Route: 065
  4. METHOTREXATE. [Concomitant]
     Active Substance: METHOTREXATE
     Dosage: DOSAGE INCREASED

REACTIONS (11)
  - Chronic obstructive pulmonary disease [Unknown]
  - Muscle spasms [Unknown]
  - Drug ineffective [Unknown]
  - Urinary tract infection [Unknown]
  - Coronary artery occlusion [Unknown]
  - Weight decreased [Unknown]
  - Abdominal pain upper [Unknown]
  - Constipation [Unknown]
  - Pain in extremity [Unknown]
  - Peripheral swelling [Unknown]
  - Dry eye [Unknown]
